FAERS Safety Report 7354863-0 (Version None)
Quarter: 2011Q1

REPORT INFORMATION
  Report Type: 
  Country: None (occurrence: None)
  Receive Date: 20110316
  Receipt Date: 20110308
  Transmission Date: 20110831
  Serious: Yes (Other)
  Sender: FDA-Public Use
  Company Number: US-ABBOTT-11P-163-0710050-00

PATIENT
  Sex: Female
  Weight: 87.622 kg

DRUGS (8)
  1. OMEPRAZOLE [Concomitant]
     Indication: PRODUCT USED FOR UNKNOWN INDICATION
  2. WARFARIN [Concomitant]
     Indication: PRODUCT USED FOR UNKNOWN INDICATION
     Dosage: 1 IN AM 5 DAYS A WEEK 1/2 TAB 2 DAYS A WEEK
  3. TRILIPIX [Suspect]
     Indication: BLOOD CHOLESTEROL
  4. ATENOLOL [Concomitant]
     Indication: PRODUCT USED FOR UNKNOWN INDICATION
  5. DYRINIUM [Concomitant]
     Indication: PRODUCT USED FOR UNKNOWN INDICATION
  6. METOLAZONE [Concomitant]
     Indication: PRODUCT USED FOR UNKNOWN INDICATION
  7. LEVOTHYROXINE [Concomitant]
     Indication: PRODUCT USED FOR UNKNOWN INDICATION
  8. ASPIRIN [Concomitant]
     Indication: PRODUCT USED FOR UNKNOWN INDICATION

REACTIONS (3)
  - CHOLECYSTECTOMY [None]
  - AMNESIA [None]
  - SOMNOLENCE [None]
